FAERS Safety Report 4428547-2 (Version None)
Quarter: 2004Q3

REPORT INFORMATION
  Report Type: 
  Country: None (occurrence: None)
  Receive Date: 20040813
  Receipt Date: 20040729
  Transmission Date: 20050211
  Serious: Yes (Other)
  Sender: FDA-Public Use
  Company Number: 200410620BCA

PATIENT
  Age: 18 Year
  Sex: Female

DRUGS (1)
  1. GAMIMUNE N 10% [Suspect]
     Dosage: 60 G, INTRAVENOUS
     Route: 042

REACTIONS (4)
  - COUGH [None]
  - DYSPNOEA [None]
  - PARAESTHESIA MUCOSAL [None]
  - THROAT IRRITATION [None]
